FAERS Safety Report 8340492 (Version 2)
Quarter: 2015Q1

REPORT INFORMATION
  Report Type: Report from Study
  Country: US (occurrence: US)
  Receive Date: 20120117
  Receipt Date: 20150213
  Transmission Date: 20150721
  Serious: Yes (Death, Hospitalization, Other)
  Sender: FDA-Public Use
  Company Number: US-ROCHE-1028698

PATIENT
  Age: 63 Year
  Sex: Male

DRUGS (14)
  1. TAGAMET [Concomitant]
     Active Substance: CIMETIDINE
     Route: 042
  2. AVASTIN [Suspect]
     Active Substance: BEVACIZUMAB
     Indication: OESOPHAGEAL ADENOCARCINOMA
     Route: 065
     Dates: start: 20091104
  3. ZOFRAN [Concomitant]
     Active Substance: ONDANSETRON HYDROCHLORIDE
     Route: 042
  4. XELODA [Suspect]
     Active Substance: CAPECITABINE
     Indication: OESOPHAGEAL ADENOCARCINOMA
     Route: 065
  5. BENADRYL [Concomitant]
     Active Substance: DIPHENHYDRAMINE HYDROCHLORIDE
     Route: 042
  6. TAXOTERE [Concomitant]
     Active Substance: DOCETAXEL
     Route: 065
     Dates: start: 200812
  7. PREDNISONE. [Concomitant]
     Active Substance: PREDNISONE
     Route: 065
  8. NEUPOGEN [Concomitant]
     Active Substance: FILGRASTIM
     Route: 058
  9. TAXOL [Concomitant]
     Active Substance: PACLITAXEL
     Route: 065
     Dates: start: 20091104
  10. CARBOPLATIN. [Concomitant]
     Active Substance: CARBOPLATIN
     Route: 065
     Dates: start: 20091104
  11. GEMCITABINE [Concomitant]
     Active Substance: GEMCITABINE\GEMCITABINE HYDROCHLORIDE
     Route: 065
     Dates: start: 200812, end: 20090501
  12. DECADRON [Concomitant]
     Active Substance: DEXAMETHASONE
     Route: 042
  13. ZOMETA [Concomitant]
     Active Substance: ZOLEDRONIC ACID
     Route: 065
  14. IRINOTECAN [Concomitant]
     Active Substance: IRINOTECAN

REACTIONS (23)
  - Pain in extremity [Unknown]
  - Anaemia [Unknown]
  - Oesophageal adenocarcinoma [Unknown]
  - Neutropenia [Unknown]
  - Death [Fatal]
  - Gastric disorder [Unknown]
  - Dysphagia [Unknown]
  - Drug ineffective [Unknown]
  - Back pain [Unknown]
  - Weight decreased [Unknown]
  - Lymphadenopathy [Unknown]
  - Alopecia [Unknown]
  - Off label use [Unknown]
  - Neuropathy peripheral [Unknown]
  - Myalgia [Unknown]
  - Fatigue [Unknown]
  - Depression [Unknown]
  - Disease progression [Unknown]
  - Metastases to lymph nodes [Unknown]
  - Decreased appetite [Unknown]
  - Gastrointestinal haemorrhage [Recovered/Resolved]
  - Breath sounds abnormal [Unknown]
  - Metastases to bone [Unknown]

NARRATIVE: CASE EVENT DATE: 20100323
